FAERS Safety Report 6385798-8 (Version None)
Quarter: 2009Q4

REPORT INFORMATION
  Report Type: 
  Country: None (occurrence: None)
  Receive Date: 20091002
  Receipt Date: 20081003
  Transmission Date: 20100525
  Serious: No
  Sender: FDA-Public Use
  Company Number: US-ASTRAZENECA-2008UW21678

PATIENT
  Age: 58 Year
  Sex: Female
  Weight: 104.3 kg

DRUGS (12)
  1. ARIMIDEX [Suspect]
     Indication: BREAST CANCER
     Route: 048
  2. LUNESTA [Concomitant]
  3. AMBIEN [Concomitant]
  4. BUSPIRONE HCL [Concomitant]
  5. CYMBALTA [Concomitant]
  6. LERICA [Concomitant]
  7. PYZAN ? [Concomitant]
  8. OXYCODONE [Concomitant]
  9. LINSINOPRIL [Concomitant]
  10. OMNIPROZOLONE [Concomitant]
  11. RELPAX [Concomitant]
  12. BROMOCRIPTINE [Concomitant]

REACTIONS (4)
  - FATIGUE [None]
  - GAIT DISTURBANCE [None]
  - HYPERHIDROSIS [None]
  - MYALGIA [None]
